FAERS Safety Report 8299863-1 (Version None)
Quarter: 2012Q2

REPORT INFORMATION
  Report Type: 
  Country: None (occurrence: None)
  Receive Date: 20120419
  Receipt Date: 20120330
  Transmission Date: 20120825
  Serious: Yes (Life-Threatening, Hospitalization, Other)
  Sender: FDA-Public Use
  Company Number: EE-BAXTER-2012BAX001899

PATIENT
  Sex: Female
  Weight: 67 kg

DRUGS (13)
  1. CHLORAMBUCIL [Suspect]
     Route: 048
     Dates: start: 20111109, end: 20111220
  2. DEXAMETHASONE [Suspect]
     Indication: MULTIPLE MYELOMA
     Dosage: TDD 40
     Route: 065
     Dates: start: 20111222, end: 20111225
  3. FILGRASTIM [Concomitant]
     Route: 065
     Dates: start: 20111126, end: 20111130
  4. FILGRASTIM [Concomitant]
     Route: 065
     Dates: start: 20111210, end: 20111214
  5. ACYCLOVIR [Concomitant]
     Route: 065
     Dates: start: 20111110
  6. ALLOPURINOL [Concomitant]
     Route: 065
     Dates: start: 20111109, end: 20111222
  7. METOPROLOL TARTRATE [Concomitant]
     Route: 065
  8. ASPIRIN [Concomitant]
     Route: 065
  9. GLYCIN [Concomitant]
     Route: 065
  10. FILGRASTIM [Concomitant]
     Route: 065
     Dates: start: 20111116, end: 20111120
  11. CYCLOPHOSPHAMIDE [Suspect]
     Indication: MULTIPLE MYELOMA
     Dosage: TDD 1800
     Route: 065
     Dates: start: 20111222, end: 20111222
  12. BONIVA [Concomitant]
     Route: 065
     Dates: start: 20111202, end: 20111202
  13. BERLOCID [Concomitant]
     Route: 065
     Dates: start: 20111110

REACTIONS (4)
  - NEUTROPENIC INFECTION [None]
  - PSEUDOMONAL SEPSIS [None]
  - ORAL CANDIDIASIS [None]
  - MULTIPLE MYELOMA [None]
